FAERS Safety Report 4435609-2 (Version None)
Quarter: 2004Q3

REPORT INFORMATION
  Report Type: 
  Country: None (occurrence: None)
  Receive Date: 20040726
  Receipt Date: 20040503
  Transmission Date: 20050211
  Serious: No
  Sender: FDA-Public Use
  Company Number: USA040566625

PATIENT
  Sex: Female

DRUGS (6)
  1. FORTEO [Suspect]
     Indication: OSTEOPOROSIS
     Dosage: 20 UG DAY
     Dates: start: 20040225
  2. ASACOL [Concomitant]
  3. BEXTRA [Concomitant]
  4. HYDROCODONE [Concomitant]
  5. LISINOPRIL [Concomitant]
  6. FOSAMAX [Concomitant]

REACTIONS (3)
  - COLITIS [None]
  - HYPOAESTHESIA [None]
  - PARAESTHESIA [None]
